FAERS Safety Report 7720530-4 (Version None)
Quarter: 2011Q3

REPORT INFORMATION
  Report Type: 
  Country: None (occurrence: None)
  Receive Date: 20110831
  Receipt Date: 20110831
  Transmission Date: 20111222
  Serious: Yes (Hospitalization)
  Sender: FDA-Public Use
  Company Number: None

PATIENT
  Age: 13 Year
  Sex: Male
  Weight: 54.431 kg

DRUGS (2)
  1. LEVOCETIRIZINE DIHYDROCHLORIDE [Suspect]
     Indication: URTICARIA
     Dosage: 1 TABLET
     Route: 048
     Dates: start: 20110818, end: 20110829
  2. HYDROXYZINE [Concomitant]
     Indication: URTICARIA
     Dosage: 1 TEASPOONFUL
     Route: 048
     Dates: start: 20110818, end: 20110829

REACTIONS (1)
  - CONVULSION [None]
